FAERS Safety Report 12834833 (Version 1)
Quarter: 2016Q4

REPORT INFORMATION
  Report Type: Report from Study
  Country: DE (occurrence: DE)
  Receive Date: 20161010
  Receipt Date: 20161010
  Transmission Date: 20170207
  Serious: Yes (Death, Hospitalization)
  Sender: FDA-Public Use
  Company Number: DE-PFIZER INC-2016468491

PATIENT
  Age: 76 Year
  Sex: Female

DRUGS (2)
  1. ENBREL [Suspect]
     Active Substance: ETANERCEPT
     Indication: RHEUMATOID ARTHRITIS
     Dosage: 50 MG, WEEKLY
  2. METHOTREXATE SODIUM. [Suspect]
     Active Substance: METHOTREXATE SODIUM
     Dosage: 10 MG, WEEKLY

REACTIONS (13)
  - Post procedural complication [Unknown]
  - Respiratory failure [Fatal]
  - Gastrointestinal perforation [Unknown]
  - Ileus paralytic [Unknown]
  - Pleural effusion [Fatal]
  - Skin ulcer [Unknown]
  - Impaired healing [Unknown]
  - Cardiovascular disorder [Unknown]
  - Pulmonary congestion [Fatal]
  - Osteonecrosis [Unknown]
  - Arthritis infective [Unknown]
  - Acute abdomen [Unknown]
  - Tendon disorder [Unknown]

NARRATIVE: CASE EVENT DATE: 201605
